FAERS Safety Report 19183176 (Version 2)
Quarter: 2022Q1

REPORT INFORMATION
  Report Type: Spontaneous
  Country: CA (occurrence: CA)
  Receive Date: 20210426
  Receipt Date: 20220128
  Transmission Date: 20220423
  Serious: Yes (Hospitalization)
  Sender: FDA-Public Use
  Company Number: CA-JNJFOC-20210446906

PATIENT
  Age: 52 Year
  Sex: Male

DRUGS (9)
  1. TYLENOL 8 HR ARTHRITIS PAIN [Suspect]
     Active Substance: ACETAMINOPHEN
     Indication: Product used for unknown indication
     Route: 048
  2. ATORVASTATIN [Suspect]
     Active Substance: ATORVASTATIN
     Indication: Product used for unknown indication
     Dosage: TAKE ONE TABLET ONCE DAILY AT BEDTIME  AT 22.00 HOURS
     Route: 048
     Dates: end: 20210801
  3. AMIODARONE HYDROCHLORIDE [Suspect]
     Active Substance: AMIODARONE HYDROCHLORIDE
     Indication: Product used for unknown indication
     Dosage: TAKE ONE TABLET ONCE DAILY REGULARLY, STEP 2 TO 2 AT 07.00 HOURS
     Route: 048
     Dates: start: 20191012, end: 20210912
  4. BISOPROLOL [Concomitant]
     Active Substance: BISOPROLOL
     Indication: Product used for unknown indication
     Dosage: TAKE 1/1 TABLET IN THE MORNING AND 1 TABLET AT BEDTIME TILL FEBRUARY SECOND THEN ONE TABLET TWICE DA
     Route: 065
     Dates: end: 20220106
  5. ENTRESTO [Concomitant]
     Active Substance: SACUBITRIL\VALSARTAN
     Indication: Product used for unknown indication
     Dosage: ENTRESTO97.2MG/102.8MG COMP,TAKE1TABLET TWICE DAILY AT BREAKFAST AND SUPPERTIME AT 07 TO 22.00 HOURS
     Route: 065
     Dates: end: 20211211
  6. PANTOPRAZOLE [Concomitant]
     Active Substance: PANTOPRAZOLE
     Indication: Product used for unknown indication
     Dosage: TAKE ONE TABLET ONCE DAILY HALF HOUR BEFORE BREAKFAST AT 07.00 HOURS
     Route: 065
     Dates: end: 20200220
  7. AMOXICILLIN [Concomitant]
     Active Substance: AMOXICILLIN
     Indication: Product used for unknown indication
     Dosage: TAKE 4 CAPSULES 1 HOURS BEFORE THE SURGERY.
     Route: 065
     Dates: end: 20200822
  8. SYNTHROID [Concomitant]
     Active Substance: LEVOTHYROXINE SODIUM
     Indication: Product used for unknown indication
     Dosage: TAKE ONE TABLET ONCE DAILY IN THE MORNING AT 07.00 HOURS
     Route: 065
     Dates: end: 20211124
  9. XARELTO [Concomitant]
     Active Substance: RIVAROXABAN
     Indication: Product used for unknown indication
     Dosage: TAKE ONE TABLET ONCE A DAILY SAME TIME EVERY DAY WHILE EATING AT 07 HOURS
     Route: 065
     Dates: end: 20210314

REACTIONS (1)
  - Drug-induced liver injury [Recovering/Resolving]

NARRATIVE: CASE EVENT DATE: 20200220
